FAERS Safety Report 9067105 (Version 1)
Quarter: 2013Q1

REPORT INFORMATION
  Report Type: Spontaneous
  Country: US (occurrence: US)
  Receive Date: 20130201
  Receipt Date: 20130201
  Transmission Date: 20140127
  Serious: No
  Sender: FDA-Public Use
  Company Number: US-ABBOTT-12P-163-1027851-00

PATIENT
  Sex: Male

DRUGS (2)
  1. HUMIRA [Suspect]
     Indication: CROHN^S DISEASE
     Route: 058
     Dates: start: 20121207, end: 20121207
  2. HUMIRA [Suspect]
     Route: 058
     Dates: start: 20121221, end: 20121221

REACTIONS (2)
  - Neuropathy peripheral [Recovered/Resolved]
  - Rectal discharge [Recovered/Resolved]
